FAERS Safety Report 6209115-9 (Version None)
Quarter: 2009Q2

REPORT INFORMATION
  Report Type: 
  Country: None (occurrence: None)
  Receive Date: 20090522
  Receipt Date: 20090126
  Transmission Date: 20091009
  Serious: No
  Sender: FDA-Public Use
  Company Number: 8041841

PATIENT
  Age: 45 Year
  Sex: Female
  Weight: 84.09 kg

DRUGS (7)
  1. CIMZIA [Suspect]
     Indication: CROHN'S DISEASE
     Dosage: 400 MG SC
     Route: 058
     Dates: start: 20090106
  2. PREDNISONE [Concomitant]
  3. ZOLOFT [Concomitant]
  4. LIALDA [Concomitant]
  5. NEURONTIN [Concomitant]
  6. SINGULAIR [Concomitant]
  7. PREVACID [Concomitant]

REACTIONS (1)
  - INJECTION SITE RASH [None]
